FAERS Safety Report 4352537-1 (Version None)
Quarter: 2004Q2

REPORT INFORMATION
  Report Type: 
  Country: None (occurrence: None)
  Receive Date: 20040428
  Receipt Date: 20040413
  Transmission Date: 20050107
  Serious: Yes (Disabling)
  Sender: FDA-Public Use
  Company Number: 2002SE02634

PATIENT
  Age: 41 Year
  Sex: Female
  Weight: 60 kg

DRUGS (2)
  1. MARCAINE [Suspect]
     Indication: ANAESTHESIA
     Dosage: 2 ML EPIDURAL INJECTION
     Route: 008
     Dates: start: 20011203, end: 20011203
  2. KENALOG [Concomitant]

REACTIONS (7)
  - ANAESTHETIC COMPLICATION [None]
  - BACK PAIN [None]
  - BRADYCARDIA [None]
  - HYPOTENSION [None]
  - NEURALGIA [None]
  - NEUROTOXICITY [None]
  - PAIN IN EXTREMITY [None]
